FAERS Safety Report 17869842 (Version 1)
Quarter: 2020Q2

REPORT INFORMATION
  Report Type: Spontaneous
  Country: US (occurrence: US)
  Receive Date: 20200608
  Receipt Date: 20200608
  Transmission Date: 20200714
  Serious: No
  Sender: FDA-Public Use
  Company Number: US-TARO-2019TAR00557

PATIENT
  Age: 3 Year
  Sex: Female
  Weight: 21.32 kg

DRUGS (2)
  1. FEVERALL INFANTS [Suspect]
     Active Substance: ACETAMINOPHEN
     Dosage: 80 MG
     Route: 054
     Dates: start: 20190731
  2. FEVERALL INFANTS [Suspect]
     Active Substance: ACETAMINOPHEN
     Indication: PYREXIA
     Dosage: UNK
     Route: 054
     Dates: start: 20190730, end: 20190730

REACTIONS (4)
  - Irritability [Unknown]
  - Oropharyngeal pain [Unknown]
  - Underdose [Not Recovered/Not Resolved]
  - Feeling hot [Unknown]

NARRATIVE: CASE EVENT DATE: 20190731
